FAERS Safety Report 7337752-7 (Version None)
Quarter: 2011Q1

REPORT INFORMATION
  Report Type: 
  Country: None (occurrence: None)
  Receive Date: 20110224
  Receipt Date: 20110215
  Transmission Date: 20110831
  Serious: Yes (Death, Hospitalization, Other)
  Sender: FDA-Public Use
  Company Number: 2010002736

PATIENT
  Age: 67 Year
  Sex: Female

DRUGS (23)
  1. NOVALGIN (METAMIZOLE SODIUM) [Concomitant]
  2. METOCLOPRAMIDE [Concomitant]
  3. FUROSEMIDE (FUROSEMIDE) [Concomitant]
  4. ERYTHROMYCIN [Concomitant]
  5. VANCOMYCIN [Concomitant]
  6. DIPYRONE TAB [Concomitant]
  7. CIPROFLOXACIN HYDROCHLORIDE (CIPROFLOXACIN) [Concomitant]
  8. LOPERAMID (LOPERAMIDE HYDROCHLORIDE) [Concomitant]
  9. CIPROFLOXACIN [Concomitant]
  10. METRONIDAZOLE [Concomitant]
  11. ZINC-DL-ASPARTAT (ZINC DL-ASPARTATE) [Concomitant]
  12. PHYTOMENADION (PHYTOMENADIONE) [Concomitant]
  13. GEMCITABINE [Suspect]
     Indication: PANCREATIC CARCINOMA METASTATIC
     Dosage: 1800 MG, QW, INTRAVENOUS
     Route: 042
     Dates: start: 20090317, end: 20090609
  14. PANTOPRAZOLE SODIUM [Concomitant]
  15. SPIRONOLACTONE [Concomitant]
  16. METAMIZOL (METAMIZOLE SODIUM) [Concomitant]
  17. MEROPENEM [Concomitant]
  18. N-ACETYLCYSTEINE (ACETYLCESTEINE) [Concomitant]
  19. TRAMADOL HCL [Concomitant]
  20. PERFALGAN (PARACETAMOL) [Concomitant]
  21. ERLOTINIB (ERLOTINIB) (TABLET) (ERLOTINIB) [Suspect]
     Indication: PANCREATIC CARCINOMA METASTATIC
     Dosage: 100 MG , QD, ORAL
     Route: 048
     Dates: start: 20090317, end: 20090526
  22. SELENASE (SODIUM SELENITE) [Concomitant]
  23. UNACID (UNACID) [Concomitant]

REACTIONS (10)
  - ILEUS [None]
  - GENERAL PHYSICAL HEALTH DETERIORATION [None]
  - PERITONITIS [None]
  - PLEURAL EFFUSION [None]
  - PULMONARY EMBOLISM [None]
  - NEOPLASM MALIGNANT [None]
  - PANCREATIC CARCINOMA [None]
  - PYLORIC STENOSIS [None]
  - LUNG DISORDER [None]
  - MALIGNANT PERITONEAL NEOPLASM [None]
